FAERS Safety Report 8808909 (Version 1)
Quarter: 2012Q4

REPORT INFORMATION
  Report Type: Spontaneous
  Country: US (occurrence: None)
  Receive Date: 20120920
  Receipt Date: 20120920
  Transmission Date: 20130627
  Serious: Yes (Other)
  Sender: FDA-Public Use
  Company Number: None

PATIENT
  Age: 81 Year
  Sex: Female
  Weight: 72.58 kg

DRUGS (1)
  1. RECLAST [Suspect]
     Indication: OSTEOPOROSIS
     Dosage: 1 a year IV
     Route: 042
     Dates: start: 2008, end: 2010

REACTIONS (5)
  - Eating disorder [None]
  - Tooth extraction [None]
  - Endodontic procedure [None]
  - Dental caries [None]
  - Oral infection [None]
